FAERS Safety Report 6112200-3 (Version None)
Quarter: 2009Q1

REPORT INFORMATION
  Report Type: 
  Country: None (occurrence: None)
  Receive Date: 20090311
  Receipt Date: 20090226
  Transmission Date: 20090719
  Serious: Yes (Other)
  Sender: FDA-Public Use
  Company Number: GR-BAUSCH-2009BL000832

PATIENT
  Age: 28 Year
  Sex: Female

DRUGS (5)
  1. PREDNISOLONE [Suspect]
     Indication: KERATITIS HERPETIC
     Route: 061
     Dates: start: 20040201, end: 20040301
  2. ACYCLOVIR [Suspect]
     Indication: KERATITIS HERPETIC
     Route: 047
     Dates: start: 20040201, end: 20040301
  3. CEFAZOLIN [Suspect]
     Indication: KERATITIS HERPETIC
     Route: 047
     Dates: start: 20040301, end: 20040301
  4. TOBRAMYCIN [Suspect]
     Indication: KERATITIS HERPETIC
     Route: 047
     Dates: start: 20040301, end: 20040301
  5. ATROPINE [Suspect]
     Indication: KERATITIS HERPETIC
     Route: 047
     Dates: start: 20040301, end: 20040301

REACTIONS (2)
  - ACANTHAMOEBA INFECTION [None]
  - HYPOPYON [None]
